FAERS Safety Report 14341841 (Version 1)
Quarter: 2018Q1

REPORT INFORMATION
  Report Type: Spontaneous
  Country: US (occurrence: US)
  Receive Date: 20180102
  Receipt Date: 20180102
  Transmission Date: 20180509
  Serious: No
  Sender: FDA-Public Use
  Company Number: US-ASTRAZENECA-2017SF27106

PATIENT
  Age: 179 Day
  Sex: Male
  Weight: 117 kg

DRUGS (3)
  1. LANTUS [Concomitant]
     Active Substance: INSULIN GLARGINE
     Dosage: TAKES 50 UNITS ONCE DAY, INJECTION
  2. METFORMIN [Concomitant]
     Active Substance: METFORMIN HYDROCHLORIDE
     Route: 048
  3. BYDUREON [Suspect]
     Active Substance: EXENATIDE
     Indication: DIABETES MELLITUS
     Route: 058

REACTIONS (6)
  - Tension [Unknown]
  - Injection site discomfort [Unknown]
  - Back pain [Recovered/Resolved]
  - Injection site extravasation [Unknown]
  - Injection site haemorrhage [Unknown]
  - Needle issue [Unknown]

NARRATIVE: CASE EVENT DATE: 20171210
